FAERS Safety Report 19718588 (Version 1)
Quarter: 2021Q3

REPORT INFORMATION
  Report Type: Spontaneous
  Country: US (occurrence: US)
  Receive Date: 20210818
  Receipt Date: 20210818
  Transmission Date: 20211014
  Serious: Yes (Death)
  Sender: FDA-Public Use
  Company Number: None

PATIENT
  Age: 52 Year
  Sex: Female

DRUGS (12)
  1. PREGABALIN 300MG [Concomitant]
     Active Substance: PREGABALIN
  2. PROZAC 20MGPROAIR RELAFEN DS 1000MG [Concomitant]
  3. XGEVA [Concomitant]
     Active Substance: DENOSUMAB
  4. CYTOMEL [Concomitant]
     Active Substance: LIOTHYRONINE SODIUM
  5. NEULASTA [Suspect]
     Active Substance: PEGFILGRASTIM
     Indication: BREAST CANCER
     Dosage: ?          OTHER FREQUENCY:OTHER;?
     Route: 058
     Dates: start: 20210420, end: 20210809
  6. VITAMIN D3 [Concomitant]
     Active Substance: CHOLECALCIFEROL
  7. NEXIUM [Concomitant]
     Active Substance: ESOMEPRAZOLE MAGNESIUM
  8. SYNTHROID [Concomitant]
     Active Substance: LEVOTHYROXINE SODIUM
  9. WELLBUTRIN XL [Concomitant]
     Active Substance: BUPROPION HYDROCHLORIDE
  10. ARMODAFINIL 250MG [Concomitant]
     Active Substance: ARMODAFINIL
  11. ARANESP [Concomitant]
     Active Substance: DARBEPOETIN ALFA
  12. OXALIPLATIN. [Concomitant]
     Active Substance: OXALIPLATIN

REACTIONS (1)
  - Death [None]

NARRATIVE: CASE EVENT DATE: 20210817
